FAERS Safety Report 10038062 (Version 1)
Quarter: 2014Q1

REPORT INFORMATION
  Report Type: Spontaneous
  Country: US (occurrence: None)
  Receive Date: 20140325
  Receipt Date: 20140325
  Transmission Date: 20141002
  Serious: Yes (Hospitalization)
  Sender: FDA-Public Use
  Company Number: None

PATIENT
  Age: 65 Year
  Sex: Male
  Weight: 107.9 kg

DRUGS (1)
  1. IOPROMIDE [Suspect]
     Indication: CARDIAC OPERATION
     Route: 042
     Dates: start: 20140320, end: 20140320

REACTIONS (4)
  - Anaphylactic reaction [None]
  - Presyncope [None]
  - Cardio-respiratory arrest [None]
  - Contrast media allergy [None]
